FAERS Safety Report 24131212 (Version 1)
Quarter: 2024Q3

REPORT INFORMATION
  Report Type: Spontaneous
  Country: CA (occurrence: None)
  Receive Date: 20240724
  Receipt Date: 20240724
  Transmission Date: 20241017
  Serious: Yes (Other)
  Sender: ORION
  Company Number: CA-PFIZER INC-202400219352

PATIENT
  Age: 73 Year
  Sex: Female

DRUGS (1)
  1. METHOTREXATE [Suspect]
     Active Substance: METHOTREXATE
     Indication: Product used for unknown indication

REACTIONS (2)
  - Vaginal cancer [Unknown]
  - Hypertension [Unknown]

NARRATIVE: CASE EVENT DATE: 20230101
